FAERS Safety Report 8011189-X (Version None)
Quarter: 2011Q4

REPORT INFORMATION
  Report Type: 
  Country: None (occurrence: None)
  Receive Date: 20111228
  Receipt Date: 20111220
  Transmission Date: 20120403
  Serious: Yes (Hospitalization)
  Sender: FDA-Public Use
  Company Number: FR-NOVOPROD-339431

PATIENT

DRUGS (5)
  1. ZESTORETIC [Concomitant]
     Indication: HYPERTENSION
  2. DIAMICRON [Concomitant]
     Indication: TYPE 2 DIABETES MELLITUS
  3. TENORDATE [Concomitant]
     Indication: HYPERTENSION
  4. GLUCOPHAGE [Concomitant]
     Indication: TYPE 2 DIABETES MELLITUS
  5. VICTOZA [Suspect]
     Indication: TYPE 2 DIABETES MELLITUS
     Dosage: UNK
     Route: 065
     Dates: start: 20100101, end: 20111104

REACTIONS (1)
  - PANCREATITIS ACUTE [None]
